FAERS Safety Report 6837677-7 (Version None)
Quarter: 2010Q3

REPORT INFORMATION
  Report Type: 
  Country: None (occurrence: None)
  Receive Date: 20100713
  Receipt Date: 20070517
  Transmission Date: 20110219
  Serious: No
  Sender: FDA-Public Use
  Company Number: US-PFIZER INC-2007040938

PATIENT
  Sex: Female
  Weight: 86.363 kg

DRUGS (6)
  1. CHANTIX [Suspect]
     Indication: SMOKING CESSATION THERAPY
     Dates: start: 20070512, end: 20070515
  2. EFFEXOR [Concomitant]
  3. ABILIFY [Concomitant]
  4. LORAZEPAM [Concomitant]
  5. ATENOLOL [Concomitant]
     Indication: HYPERTENSION
  6. SEROQUEL [Concomitant]

REACTIONS (3)
  - NAUSEA [None]
  - RASH ERYTHEMATOUS [None]
  - VOMITING [None]
